FAERS Safety Report 24994954 (Version 1)
Quarter: 2025Q1

REPORT INFORMATION
  Report Type: Spontaneous
  Country: US (occurrence: None)
  Receive Date: 20250220
  Receipt Date: 20250220
  Transmission Date: 20250409
  Serious: Yes (Hospitalization)
  Sender: FDA-CTU
  Company Number: None

PATIENT
  Age: 28 Month
  Sex: Male

DRUGS (1)
  1. SYNAGIS [Suspect]
     Active Substance: PALIVIZUMAB
     Indication: Lung disorder
     Dosage: FREQUENCY : MONTHLY;?
     Route: 030
     Dates: start: 202410

REACTIONS (2)
  - Influenza [None]
  - Haematological infection [None]

NARRATIVE: CASE EVENT DATE: 20250211
